FAERS Safety Report 26218285 (Version 1)
Quarter: 2025Q4

REPORT INFORMATION
  Report Type: Report from Study
  Country: AU (occurrence: AU)
  Receive Date: 20251231
  Receipt Date: 20251231
  Transmission Date: 20260117
  Serious: Yes (Hospitalization)
  Sender: TAKEDA
  Company Number: AU-JNJFOC-20251230163

PATIENT
  Age: 59 Year
  Sex: Male

DRUGS (21)
  1. BORTEZOMIB [Suspect]
     Active Substance: BORTEZOMIB
     Indication: Plasma cell myeloma refractory
     Dosage: 1.3 MILLIGRAM/SQ. METER
  2. BORTEZOMIB [Suspect]
     Active Substance: BORTEZOMIB
     Dosage: 1 MILLIGRAM/SQ. METER
  3. BORTEZOMIB [Suspect]
     Active Substance: BORTEZOMIB
     Dosage: 0.7 MILLIGRAM/SQ.METER
  4. DEXAMETHASONE [Suspect]
     Active Substance: DEXAMETHASONE
     Indication: Plasma cell myeloma refractory
     Dosage: 20 MILLIGRAM
  5. POMALIDOMIDE [Suspect]
     Active Substance: POMALIDOMIDE
     Indication: Plasma cell myeloma refractory
     Dosage: 4 MILLIGRAM
  6. POMALIDOMIDE [Suspect]
     Active Substance: POMALIDOMIDE
     Dosage: 3 MILLIGRAM
  7. BACTRIM DS [Concomitant]
     Active Substance: SULFAMETHOXAZOLE\TRIMETHOPRIM
     Indication: Prophylaxis
     Dosage: UNK UNK, Q12H
     Dates: start: 20220524
  8. GLYCOSAMINOGLYCANS [Concomitant]
     Active Substance: GLYCOSAMINOGLYCANS
     Indication: Injection site bruising
     Dosage: 3 MILLIGRAM
     Route: 061
  9. ASPIRIN [Concomitant]
     Active Substance: ASPIRIN
     Indication: Prophylaxis
     Dosage: 100 MILLIGRAM, QD
     Dates: start: 20220524
  10. ESOMEPRAZOLE [Concomitant]
     Active Substance: ESOMEPRAZOLE
     Indication: Gastrooesophageal reflux prophylaxis
     Dosage: 20 MILLIGRAM
  11. HYDROCORTISONE [Concomitant]
     Active Substance: HYDROCORTISONE
     Indication: Prophylaxis
     Dosage: 100 MILLIGRAM
  12. METHOXYFLURANE [Concomitant]
     Active Substance: METHOXYFLURANE
     Indication: Pain
     Dosage: 3 MILLILITER
  13. OXYCODONE [Concomitant]
     Active Substance: OXYCODONE
     Indication: Back pain
     Dosage: 5 MILLIGRAM
  14. OXYCODONE [Concomitant]
     Active Substance: OXYCODONE
     Indication: Infection
  15. ACETAMINOPHEN [Concomitant]
     Active Substance: ACETAMINOPHEN
     Indication: Back pain
     Dosage: 1000 MILLIGRAM
  16. ACETAMINOPHEN [Concomitant]
     Active Substance: ACETAMINOPHEN
     Indication: Infection
  17. TIMOLOL [Concomitant]
     Active Substance: TIMOLOL
     Indication: Glaucoma
     Dosage: UNK
  18. EVENING PRIMROSE OIL\HERBALS [Concomitant]
     Active Substance: EVENING PRIMROSE OIL\HERBALS
     Indication: Injection site bruising
     Dosage: 1000 MILLIGRAM
     Route: 061
  19. ECONAZOLE NITRATE [Concomitant]
     Active Substance: ECONAZOLE NITRATE
     Indication: Product used for unknown indication
     Dosage: UNK
     Dates: start: 20230503, end: 20230505
  20. ECONAZOLE NITRATE [Concomitant]
     Active Substance: ECONAZOLE NITRATE
     Dosage: UNK
  21. VITAMIN D [Concomitant]
     Active Substance: VITAMIN D NOS
     Indication: Nutritional supplementation
     Dosage: 1000 INTERNATIONAL UNIT

REACTIONS (1)
  - Rhinovirus infection [Recovered/Resolved]

NARRATIVE: CASE EVENT DATE: 20251116
